FAERS Safety Report 4723879-2 (Version None)
Quarter: 2005Q3

REPORT INFORMATION
  Report Type: 
  Country: None (occurrence: None)
  Receive Date: 20050721
  Receipt Date: 20050705
  Transmission Date: 20060218
  Serious: Yes (Hospitalization, Other)
  Sender: FDA-Public Use
  Company Number: USA0506100643

PATIENT
  Age: 75 Year
  Sex: Female

DRUGS (3)
  1. FORTEO [Suspect]
     Dosage: 20 UG/1 DAY
     Dates: start: 20040601
  2. PRILOSEC [Concomitant]
  3. SENOKOT (SENNA (ALEXANDRINA) [Concomitant]

REACTIONS (7)
  - ERYTHEMA [None]
  - FALL [None]
  - FEMUR FRACTURE [None]
  - GOUT [None]
  - HIP FRACTURE [None]
  - MEDICAL DEVICE COMPLICATION [None]
  - SWELLING [None]
